FAERS Safety Report 22620790 (Version 1)
Quarter: 2023Q2

REPORT INFORMATION
  Report Type: Spontaneous
  Country: US (occurrence: US)
  Receive Date: 20230620
  Receipt Date: 20230620
  Transmission Date: 20230722
  Serious: Yes (Other)
  Sender: FDA-Public Use
  Company Number: US-PFIZER INC-202300220787

PATIENT
  Age: 53 Year
  Sex: Female

DRUGS (6)
  1. TRANEXAMIC ACID [Suspect]
     Active Substance: TRANEXAMIC ACID
     Indication: Face lift
     Dosage: 10 ML TXA 1000MG/ML, TXA CONCENTRATION OF 8.9MG/ML; TOTAL TXA 356MG
  2. TRANEXAMIC ACID [Suspect]
     Active Substance: TRANEXAMIC ACID
     Indication: Neurectomy
  3. EPINEPHRINE [Concomitant]
     Active Substance: EPINEPHRINE
     Indication: Neurectomy
     Dosage: 2ML EPINEPHRINE 1MG/ML
  4. EPINEPHRINE [Concomitant]
     Active Substance: EPINEPHRINE
     Indication: Face lift
  5. CYANOCOBALAMIN [Concomitant]
     Active Substance: CYANOCOBALAMIN
     Indication: Face lift
     Dosage: 1 ML
  6. CYANOCOBALAMIN [Concomitant]
     Active Substance: CYANOCOBALAMIN
     Indication: Neurectomy

REACTIONS (2)
  - Impaired healing [Not Recovered/Not Resolved]
  - Off label use [Unknown]
